FAERS Safety Report 7954135-7 (Version None)
Quarter: 2011Q4

REPORT INFORMATION
  Report Type: 
  Country: None (occurrence: None)
  Receive Date: 20111202
  Receipt Date: 20111122
  Transmission Date: 20120403
  Serious: Yes (Hospitalization)
  Sender: FDA-Public Use
  Company Number: US-BAYER-2011-040603

PATIENT
  Age: 35 Year
  Sex: Female
  Weight: 53.968 kg

DRUGS (2)
  1. YAZ [Suspect]
     Indication: CONTRACEPTION
     Dosage: UNK
     Dates: start: 20070601, end: 20080902
  2. ASCORBIC ACID [Concomitant]

REACTIONS (7)
  - PAIN [None]
  - HEADACHE [None]
  - CEREBROVASCULAR ACCIDENT [None]
  - ANHEDONIA [None]
  - EMOTIONAL DISTRESS [None]
  - INTRACRANIAL VENOUS SINUS THROMBOSIS [None]
  - AMNESIA [None]
